FAERS Safety Report 11801068 (Version 1)
Quarter: 2015Q4

REPORT INFORMATION
  Report Type: Spontaneous
  Country: DE (occurrence: DE)
  Receive Date: 20151204
  Receipt Date: 20151204
  Transmission Date: 20160305
  Serious: Yes (Congenital Anomaly, Other)
  Sender: FDA-Public Use
  Company Number: DE-SUN PHARMACEUTICAL INDUSTRIES LTD-2015R1-107166

PATIENT
  Age: 34 Year
  Sex: Female
  Weight: 75 kg

DRUGS (5)
  1. BUDES N [Suspect]
     Active Substance: BUDESONIDE
     Indication: ASTHMA
     Route: 055
  2. NASONEX [Concomitant]
     Active Substance: MOMETASONE FUROATE
     Indication: NASAL POLYPS
     Route: 045
  3. DUORESP SPIROMAX [Concomitant]
     Active Substance: BUDESONIDE\FORMOTEROL
     Indication: ASTHMA
     Route: 055
  4. MONTELUKAST [Concomitant]
     Active Substance: MONTELUKAST SODIUM
     Indication: ASTHMA
     Route: 048
  5. ACETYLSALICYLIC ACID [Suspect]
     Active Substance: ASPIRIN
     Indication: ASPIRIN-EXACERBATED RESPIRATORY DISEASE
     Route: 048

REACTIONS (3)
  - Exposure during pregnancy [Recovered/Resolved]
  - Congenital anomaly in offspring [Unknown]
  - Premature rupture of membranes [Unknown]
